FAERS Safety Report 9970404 (Version 2)
Quarter: 2014Q1

REPORT INFORMATION
  Report Type: Report from Study
  Country: US (occurrence: US)
  Receive Date: 20140306
  Receipt Date: 20140306
  Transmission Date: 20141002
  Serious: No
  Sender: FDA-Public Use
  Company Number: US-ABBVIE-13P-163-1145089-00

PATIENT
  Age: 61 Year
  Sex: Female
  Weight: 103.06 kg

DRUGS (18)
  1. HUMIRA [Suspect]
     Indication: CROHN^S DISEASE
     Dosage: 2 PENS EACH DAY FOR 2 DAYS
     Route: 058
     Dates: start: 20130726, end: 20130727
  2. HUMIRA [Suspect]
     Route: 058
     Dates: start: 201307, end: 20130926
  3. NASONEX [Concomitant]
     Indication: PRODUCT USED FOR UNKNOWN INDICATION
  4. METFORMIN [Concomitant]
     Indication: PRODUCT USED FOR UNKNOWN INDICATION
  5. GLYBURIDE [Concomitant]
     Indication: PRODUCT USED FOR UNKNOWN INDICATION
  6. ASPIRIN [Concomitant]
     Indication: PRODUCT USED FOR UNKNOWN INDICATION
  7. ALLERGY SHOT [Concomitant]
     Indication: PRODUCT USED FOR UNKNOWN INDICATION
  8. PREDNISONE [Concomitant]
     Indication: RASH
  9. COLCHICINE [Concomitant]
     Indication: PRODUCT USED FOR UNKNOWN INDICATION
  10. TRAMADOL [Concomitant]
     Indication: PAIN
  11. HYDROXYZINE [Concomitant]
     Indication: RASH
  12. HYDROXYZINE [Concomitant]
     Indication: PRURITUS
  13. FERROUS SULPHATE [Concomitant]
     Indication: PRODUCT USED FOR UNKNOWN INDICATION
  14. CENTRUM MULTIVITAMIN [Concomitant]
     Indication: PRODUCT USED FOR UNKNOWN INDICATION
  15. VITAMIN C [Concomitant]
     Indication: PRODUCT USED FOR UNKNOWN INDICATION
  16. PRAVACHOL [Concomitant]
     Indication: BLOOD CHOLESTEROL INCREASED
  17. CALCIUM [Concomitant]
     Indication: PRODUCT USED FOR UNKNOWN INDICATION
  18. PROBIOTIC [Concomitant]
     Indication: PRODUCT USED FOR UNKNOWN INDICATION

REACTIONS (9)
  - Arthralgia [Not Recovered/Not Resolved]
  - Pruritus [Recovering/Resolving]
  - Pain of skin [Recovering/Resolving]
  - Pain [Not Recovered/Not Resolved]
  - Blister [Recovering/Resolving]
  - Erythema [Recovering/Resolving]
  - Rash [Not Recovered/Not Resolved]
  - Rash [Recovering/Resolving]
  - Drug ineffective [Not Recovered/Not Resolved]
